FAERS Safety Report 12162151 (Version 1)
Quarter: 2016Q1

REPORT INFORMATION
  Report Type: Spontaneous
  Country: JP (occurrence: JP)
  Receive Date: 20160309
  Receipt Date: 20160309
  Transmission Date: 20160526
  Serious: Yes (Other)
  Sender: FDA-Public Use
  Company Number: JP-SUN PHARMACEUTICAL INDUSTRIES LTD-2016R1-112341

PATIENT
  Age: 71 Year
  Sex: Male

DRUGS (7)
  1. IRINOTECAN [Suspect]
     Active Substance: IRINOTECAN
     Indication: RECTAL CANCER STAGE III
     Dosage: 80%
     Route: 065
  2. FOLINIC ACID [Suspect]
     Active Substance: LEUCOVORIN
     Indication: RECTAL CANCER STAGE III
     Dosage: 70% DOSE 2 HR
     Route: 065
     Dates: start: 20061218
  3. FLUOROURACIL. [Suspect]
     Active Substance: FLUOROURACIL
     Indication: RECTAL CANCER STAGE III
     Dosage: 70% DOSE 46 HR
     Route: 065
     Dates: start: 20061218
  4. FOLINIC ACID [Suspect]
     Active Substance: LEUCOVORIN
     Indication: RECTAL CANCER STAGE III
     Dosage: 80% DOSE
     Route: 065
  5. FLUOROURACIL. [Suspect]
     Active Substance: FLUOROURACIL
     Indication: RECTAL CANCER STAGE III
     Dosage: 70% DOSE
     Route: 065
     Dates: start: 20061218
  6. FLUOROURACIL. [Suspect]
     Active Substance: FLUOROURACIL
     Indication: RECTAL CANCER STAGE III
     Dosage: 80 % DOSE
     Route: 065
  7. IRINOTECAN [Suspect]
     Active Substance: IRINOTECAN
     Indication: RECTAL CANCER STAGE III
     Dosage: 70% DOSE 2 HR
     Route: 065
     Dates: start: 20061218

REACTIONS (2)
  - Therapeutic response decreased [Unknown]
  - Bone marrow failure [Unknown]
